FAERS Safety Report 7389390-8 (Version None)
Quarter: 2011Q2

REPORT INFORMATION
  Report Type: 
  Country: None (occurrence: None)
  Receive Date: 20110401
  Receipt Date: 20110330
  Transmission Date: 20111010
  Serious: Yes (Hospitalization, Other)
  Sender: FDA-Public Use
  Company Number: VE-PFIZER INC-2011071052

PATIENT
  Age: 70 Year
  Sex: Female

DRUGS (3)
  1. ZOLOFT [Concomitant]
     Indication: DEPRESSION
     Dosage: 50 MG, 1X/DAY
     Route: 048
     Dates: start: 20101201
  2. CADUET [Suspect]
     Indication: HYPERTENSION
     Dosage: 5/20 MG, 1X/DAY
     Route: 048
     Dates: start: 20080101
  3. AMLODIPINE [Concomitant]
     Indication: HYPERTENSION
     Dosage: 5 MG, 1X/DAY
     Route: 048
     Dates: start: 20080101

REACTIONS (1)
  - RESPIRATORY ARREST [None]
